FAERS Safety Report 7315080-3 (Version None)
Quarter: 2011Q1

REPORT INFORMATION
  Report Type: 
  Country: None (occurrence: None)
  Receive Date: 20110225
  Receipt Date: 20100416
  Transmission Date: 20110831
  Serious: No
  Sender: FDA-Public Use
  Company Number: US-MYLANLABS-2010S1005580

PATIENT
  Age: 19 Year
  Sex: Female
  Weight: 54.43 kg

DRUGS (1)
  1. AMNESTEEM [Suspect]
     Indication: ACNE CYSTIC
     Route: 048
     Dates: start: 20100212, end: 20100212

REACTIONS (2)
  - NAUSEA [None]
  - HEADACHE [None]
